FAERS Safety Report 7325868-0 (Version None)
Quarter: 2011Q1

REPORT INFORMATION
  Report Type: 
  Country: None (occurrence: None)
  Receive Date: 20110302
  Receipt Date: 20110224
  Transmission Date: 20110831
  Serious: Yes (Hospitalization, Other)
  Sender: FDA-Public Use
  Company Number: JP-PFIZER INC-2010063997

PATIENT
  Age: 68 Year
  Sex: Male
  Weight: 68 kg

DRUGS (20)
  1. LIPITOR [Suspect]
     Indication: LIPID METABOLISM DISORDER
     Dosage: 10 MG, 1X/DAY
     Route: 048
     Dates: start: 20081201, end: 20100507
  2. PLAVIX [Suspect]
     Dosage: UNK
     Route: 048
  3. ARTIST [Suspect]
     Indication: MYOCARDIAL INFARCTION
     Dosage: 5 MG, 1X/DAY
     Route: 048
     Dates: start: 20081201
  4. MICARDIS [Suspect]
     Indication: HYPERTENSION
     Dosage: 40 MG, 1X/DAY
     Route: 048
     Dates: start: 20081201, end: 20100426
  5. TAKEPRON [Suspect]
     Indication: UPPER GASTROINTESTINAL HAEMORRHAGE
     Dosage: 15 MG, 1X/DAY
     Route: 048
     Dates: start: 20081201, end: 20100507
  6. EPADEL [Suspect]
     Indication: MYOCARDIAL INFARCTION
  7. LASIX [Suspect]
     Indication: MYOCARDIAL INFARCTION
     Dosage: 40 MG, 1X/DAY
     Route: 048
     Dates: start: 20091019, end: 20100507
  8. ALDACTONE [Suspect]
     Dosage: 25 MG, 1X/DAY
     Route: 048
     Dates: start: 20081201, end: 20100507
  9. EPADEL [Suspect]
     Indication: LIPID METABOLISM DISORDER
     Dosage: 600 MG, 1X/DAY
     Route: 048
     Dates: start: 20081201, end: 20100507
  10. FRANDOL [Concomitant]
     Indication: MYOCARDIAL INFARCTION
     Dosage: 40 MG, 1X/DAY
     Dates: start: 20081201, end: 20100507
  11. LIPITOR [Suspect]
     Indication: MYOCARDIAL INFARCTION
  12. ECARD HD [Suspect]
     Indication: ISCHAEMIC HEART DISEASE PROPHYLAXIS
  13. ECARD HD [Suspect]
     Indication: MYOCARDIAL INFARCTION
     Dosage: 1 DF, 1X/DAY
     Route: 048
     Dates: start: 20100426, end: 20100507
  14. MICARDIS [Suspect]
     Indication: MYOCARDIAL INFARCTION
  15. ECARD HD [Suspect]
     Indication: HYPERTENSION
  16. LIPITOR [Suspect]
     Indication: CHRONIC OBSTRUCTIVE PULMONARY DISEASE
  17. BUFFERIN [Suspect]
     Indication: MYOCARDIAL INFARCTION
     Dosage: 81 MG, 1X/DAY
     Route: 048
     Dates: start: 20081201, end: 20100507
  18. BUFFERIN [Suspect]
     Indication: THROMBOSIS PROPHYLAXIS
  19. EPADEL [Suspect]
     Indication: CHRONIC OBSTRUCTIVE PULMONARY DISEASE
  20. EPADEL [Suspect]
     Indication: THROMBOSIS PROPHYLAXIS

REACTIONS (5)
  - HEPATIC FUNCTION ABNORMAL [None]
  - PNEUMONIA [None]
  - BACTERIAL INFECTION [None]
  - ASTHENIA [None]
  - BRONCHIOLITIS [None]
